FAERS Safety Report 9918844 (Version 1)
Quarter: 2014Q1

REPORT INFORMATION
  Report Type: Spontaneous
  Country: KR (occurrence: KR)
  Receive Date: 20140224
  Receipt Date: 20140224
  Transmission Date: 20141002
  Serious: Yes (Death, Other)
  Sender: FDA-Public Use
  Company Number: KR-OTSUKA-JP-2014-10952

PATIENT
  Sex: 0

DRUGS (3)
  1. PLETAAL [Suspect]
     Indication: CORONARY ARTERY DISEASE
     Dosage: 100 MG MILLIGRAM(S), BID
     Route: 048
  2. ASPIRIN [Concomitant]
     Indication: CORONARY ARTERY DISEASE
     Dosage: 100 MG MILLIGRAM(S), DAILY DOSE
     Route: 065
  3. CLOPIDOGREL SULFATE [Concomitant]
     Indication: CORONARY ARTERY DISEASE
     Dosage: 75 MG MILLIGRAM(S), DAILY DOSE
     Route: 048

REACTIONS (15)
  - Death [Fatal]
  - Cardiac failure [Fatal]
  - Cerebral infarction [Fatal]
  - Cerebral haemorrhage [Fatal]
  - Respiratory distress [Fatal]
  - Pneumonia [Fatal]
  - Haemorrhage [Unknown]
  - Cerebral haemorrhage [Unknown]
  - Gastrointestinal haemorrhage [Unknown]
  - Haemorrhage [Unknown]
  - Neutropenia [Unknown]
  - Palpitations [Unknown]
  - Headache [Unknown]
  - Rash [Unknown]
  - Off label use [None]
